FAERS Safety Report 12789795 (Version 1)
Quarter: 2016Q3

REPORT INFORMATION
  Report Type: Spontaneous
  Country: TR (occurrence: TR)
  Receive Date: 20160928
  Receipt Date: 20160928
  Transmission Date: 20161109
  Serious: No
  Sender: FDA-Public Use
  Company Number: TR-TOLMAR, INC.-2015TR007241

PATIENT
  Age: 68 Year
  Sex: Male
  Weight: 80 kg

DRUGS (2)
  1. ELIGARD [Suspect]
     Active Substance: LEUPROLIDE ACETATE
     Dosage: 22.5 MG, CYCLIC EVERY 3 MONTHS
     Route: 065
     Dates: start: 20150501
  2. ELIGARD [Suspect]
     Active Substance: LEUPROLIDE ACETATE
     Indication: PROSTATE CANCER
     Dosage: 22.5 MG, CYCLIC 3 MONTHS
     Route: 065

REACTIONS (1)
  - Incorrect product storage [Unknown]

NARRATIVE: CASE EVENT DATE: 20150803
